FAERS Safety Report 9641754 (Version 4)
Quarter: 2014Q2

REPORT INFORMATION
  Report Type: Report from Study
  Country: AR (occurrence: AR)
  Receive Date: 20131023
  Receipt Date: 20140422
  Transmission Date: 20141212
  Serious: Yes (Hospitalization)
  Sender: FDA-Public Use
  Company Number: AR-BRISTOL-MYERS SQUIBB COMPANY-19595248

PATIENT
  Age: 62 Year
  Sex: Male

DRUGS (3)
  1. BELATACEPT [Suspect]
     Indication: RENAL TRANSPLANT
     Route: 042
     Dates: start: 20060924
  2. MYCOPHENOLATE MOFETIL [Suspect]
     Dates: start: 20060924
  3. METHYLPREDNISONE [Suspect]
     Dates: start: 20060927

REACTIONS (1)
  - Urinary tract infection [Recovered/Resolved]
